FAERS Safety Report 7548898-2 (Version None)
Quarter: 2011Q2

REPORT INFORMATION
  Report Type: 
  Country: None (occurrence: None)
  Receive Date: 20110615
  Receipt Date: 20110606
  Transmission Date: 20111010
  Serious: Yes (Hospitalization)
  Sender: FDA-Public Use
  Company Number: GB-PFIZER INC-2011128429

PATIENT
  Age: 82 Year
  Sex: Male

DRUGS (11)
  1. CO-BENELDOPA [Concomitant]
     Route: 065
  2. EPADERM [Concomitant]
     Route: 065
  3. GLYCERYL TRINITRATE [Concomitant]
     Route: 065
  4. AMIODARONE HCL [Suspect]
     Indication: ATRIAL FIBRILLATION
     Dosage: 200 MG, 1X/DAY
     Route: 048
     Dates: start: 20070101, end: 20110125
  5. TIOTROPIUM BROMIDE [Concomitant]
     Route: 065
  6. MOMETASONE [Concomitant]
     Route: 065
  7. SIMVASTATIN [Concomitant]
     Route: 065
  8. TACROLIMUS [Concomitant]
     Route: 065
  9. ISOSORBIDE MONONITRATE [Concomitant]
     Route: 066
  10. AQUEOUS CREAM [Concomitant]
     Route: 065
  11. SALBUTAMOL [Concomitant]
     Route: 065

REACTIONS (6)
  - FALL [None]
  - CONFUSIONAL STATE [None]
  - MOBILITY DECREASED [None]
  - HYPERTHYROIDISM [None]
  - THYROXINE INCREASED [None]
  - BLOOD THYROID STIMULATING HORMONE DECREASED [None]
